FAERS Safety Report 5569917-9 (Version None)
Quarter: 2007Q4

REPORT INFORMATION
  Report Type: 
  Country: None (occurrence: None)
  Receive Date: 20071218
  Receipt Date: 20071204
  Transmission Date: 20080405
  Serious: Yes (Hospitalization)
  Sender: FDA-Public Use
  Company Number: AZAUK200700456

PATIENT
  Age: 63 Year
  Sex: Male

DRUGS (9)
  1. VIDAZA [Suspect]
     Indication: CYTOGENETIC ABNORMALITY
     Dosage: 37.5 MG/M2, DAILY X 7 DAYS), SUBCUTANEOUS
     Route: 058
     Dates: start: 20071107, end: 20071113
  2. ACETAMINOPHEN [Concomitant]
  3. TRAMADOL HCL [Concomitant]
  4. CETIRIZINE HCL [Concomitant]
  5. FOLIC ACID [Concomitant]
  6. FLUOXETINE [Concomitant]
  7. OMEPRAZOLE [Concomitant]
  8. DOMPERIDONE (DOMPERIDONE) [Concomitant]
  9. PROCHLORPERAZINE MALEATE [Concomitant]

REACTIONS (1)
  - PANCREATITIS ACUTE [None]
